FAERS Safety Report 7428527-9 (Version None)
Quarter: 2011Q2

REPORT INFORMATION
  Report Type: 
  Country: None (occurrence: None)
  Receive Date: 20110421
  Receipt Date: 20110413
  Transmission Date: 20111010
  Serious: Yes (Other)
  Sender: FDA-Public Use
  Company Number: JP-B.I. PHARMACEUTICALS,INC./RIDGEFIELD-2011-BP-10064YA

PATIENT
  Sex: Male
  Weight: 62.7 kg

DRUGS (9)
  1. PROTECADIN (LAFUTIDINE) [Concomitant]
     Route: 048
  2. AZULOXA (EGUALEN SODIUM) [Concomitant]
  3. HYDROCHLOROTHIAZIDE W/TELMISARTAN (HYDROCHLOROTHIAZIDE, TELMISARTAN) [Concomitant]
     Dates: start: 20100121
  4. DIGOXIN [Concomitant]
     Route: 048
  5. LIPITOR [Concomitant]
  6. SIGMART (NICORANDIL) [Concomitant]
     Route: 048
  7. MICARDIS [Concomitant]
  8. WARFARIN SODIUM [Concomitant]
     Route: 048
  9. HARNAL (TAMSULOSIN) ORODISPERSABLE CR [Suspect]
     Indication: BENIGN PROSTATIC HYPERPLASIA
     Route: 048
     Dates: end: 20101213

REACTIONS (1)
  - INTERVERTEBRAL DISC PROTRUSION [None]
